FAERS Safety Report 10263591 (Version 2)
Quarter: 2014Q2

REPORT INFORMATION
  Report Type: Report from Study
  Country: US (occurrence: US)
  Receive Date: 20140626
  Receipt Date: 20140626
  Transmission Date: 20141212
  Serious: Yes (Hospitalization, Other)
  Sender: FDA-Public Use
  Company Number: PHEH2014US010796

PATIENT
  Age: 41 Year
  Sex: Female
  Weight: 63.49 kg

DRUGS (27)
  1. TOBI PODHALER [Suspect]
     Indication: CYSTIC FIBROSIS
     Dosage: 4 DF, BID
     Route: 055
  2. TOBI PODHALER [Suspect]
     Indication: LUNG DISORDER
     Dosage: 4 DF, BID (28 MG CAPULE)
     Route: 055
  3. TOBI PODHALER [Suspect]
     Indication: PSEUDOMONAS INFECTION
  4. PROAIR [Concomitant]
     Dosage: UNK
  5. FLAGYL [Concomitant]
     Dosage: UNK
     Route: 048
  6. AUGMENTIN [Concomitant]
     Dosage: UNK
     Route: 048
  7. COLACE [Concomitant]
     Dosage: UNK
     Route: 048
  8. FLONASE [Concomitant]
     Dosage: UNK
  9. HYPERTONIC SALINE SOLUTION [Concomitant]
     Dosage: 4 ML, BID
     Route: 055
  10. ALBUTEROL [Concomitant]
     Dosage: 2 DF, BID
  11. VITAMIN D3 [Concomitant]
     Dosage: 1 DF, DAILY
     Route: 048
  12. PULMOZYME [Concomitant]
     Dosage: 2.5 MG, DAILY
     Route: 055
  13. AQUADEKS [Concomitant]
     Dosage: 2 DF, DAILY
     Route: 048
  14. CREON [Concomitant]
     Dosage: 6 DF, TID (WITH MEAL)
     Route: 048
  15. CREON [Concomitant]
     Dosage: 3 DF, WITH SNACKS
     Route: 048
  16. PROTONIX [Concomitant]
     Dosage: 1 DF, QD (30 MINS BEFORE MEAL)
     Route: 048
  17. ZOLOFT [Concomitant]
     Dosage: 3 DF, EVERY EVENING
     Route: 048
  18. TETANUS VACCIN [Concomitant]
     Dosage: UNK
     Dates: start: 20000124
  19. INFLUENZA VACCINE [Concomitant]
     Dosage: UNK
     Dates: start: 20111010
  20. INFLUENZA VACCINE [Concomitant]
     Dosage: UNK
     Route: 023
     Dates: start: 20131108
  21. INFLUENZA VACCINE [Concomitant]
     Dosage: UNK
     Dates: start: 20140110
  22. PNEUMOCOCCAL POLYSACCHARIDE VACCINE [Concomitant]
     Dosage: UNK
     Dates: start: 20111020
  23. ZITHROMAX [Concomitant]
     Dosage: UNK UKN, (ON MOMDAY, WEDNESDAY AND FRIDAY)
     Route: 048
  24. ALBUTEROL HFA [Concomitant]
     Dosage: UNK
  25. IMIPENEM [Concomitant]
     Dosage: UNK
     Dates: end: 20140109
  26. LIDOCAINE [Concomitant]
     Dosage: UNK UKN, UNK
  27. NEO SYNEPHRINE [Concomitant]
     Dosage: 1/2 PERCENT

REACTIONS (12)
  - Condition aggravated [Recovering/Resolving]
  - Cystic fibrosis [Recovering/Resolving]
  - Sinus disorder [Unknown]
  - Gastrointestinal disorder [Unknown]
  - Pancreatic insufficiency [Unknown]
  - Fibroadenoma of breast [Unknown]
  - Mycobacterium kansasii infection [Unknown]
  - Chronic sinusitis [Recovering/Resolving]
  - Nasal polyps [Unknown]
  - Vitamin D deficiency [Unknown]
  - Gastrooesophageal reflux disease [Unknown]
  - Dyspepsia [Unknown]
